FAERS Safety Report 5308806-1 (Version None)
Quarter: 2007Q2

REPORT INFORMATION
  Report Type: 
  Country: None (occurrence: None)
  Receive Date: 20070426
  Receipt Date: 20070414
  Transmission Date: 20071010
  Serious: Yes (Other)
  Sender: FDA-Public Use
  Company Number: US-PFIZER INC-2007030283

PATIENT
  Sex: Male
  Weight: 122.72 kg

DRUGS (13)
  1. NEURONTIN [Suspect]
  2. LYRICA [Suspect]
     Indication: NEUROPATHY
  3. CRESTOR [Suspect]
  4. WARFARIN [Concomitant]
  5. ZETIA [Concomitant]
  6. TOPROL-XL [Concomitant]
  7. LISINOPRIL [Concomitant]
  8. DIGITEK [Concomitant]
  9. TRICOR [Concomitant]
  10. DIPHENOXYLATE [Concomitant]
  11. VICODIN [Concomitant]
  12. HYDROCHLOROTHIAZIDE [Concomitant]
  13. CYMBALTA [Concomitant]

REACTIONS (8)
  - ABASIA [None]
  - ANGIOPATHY [None]
  - ARRHYTHMIA [None]
  - DRUG INEFFECTIVE [None]
  - HYPERSENSITIVITY [None]
  - MUSCLE SPASMS [None]
  - NEUROPATHY [None]
  - PAIN IN EXTREMITY [None]
